FAERS Safety Report 16678879 (Version 1)
Quarter: 2019Q3

REPORT INFORMATION
  Report Type: Other
  Country: CN (occurrence: CN)
  Receive Date: 20190807
  Receipt Date: 20190807
  Transmission Date: 20191004
  Serious: Yes (Hospitalization, Other)
  Sender: FDA-Public Use
  Company Number: CN-TOPROL ACQUISITION LLC-2019-TOP-000788

PATIENT
  Age: 70 Year
  Sex: Male
  Weight: 62 kg

DRUGS (1)
  1. METOPROLOL SUCCINATE. [Suspect]
     Active Substance: METOPROLOL SUCCINATE
     Indication: HEART RATE ABNORMAL
     Dosage: 23.75 MG, QD
     Route: 048
     Dates: start: 20190716, end: 20190717

REACTIONS (2)
  - Bradycardia [Recovering/Resolving]
  - Atrial fibrillation [Unknown]

NARRATIVE: CASE EVENT DATE: 20190717
